FAERS Safety Report 12443922 (Version 1)
Quarter: 2016Q2

REPORT INFORMATION
  Report Type: Spontaneous
  Country: US (occurrence: US)
  Receive Date: 20160607
  Receipt Date: 20160607
  Transmission Date: 20160815
  Serious: No
  Sender: FDA-Public Use
  Company Number: US-SA-2016SA049578

PATIENT
  Age: 49 Year
  Sex: Male

DRUGS (3)
  1. NOVOLIN N [Concomitant]
     Active Substance: INSULIN HUMAN
     Dosage: DOSE:50 UNIT(S)
  2. NOVOLIN R [Concomitant]
     Active Substance: INSULIN HUMAN
  3. TOUJEO [Suspect]
     Active Substance: INSULIN GLARGINE
     Indication: TYPE 2 DIABETES MELLITUS
     Dosage: DOSE:50 UNIT(S)
     Route: 065
     Dates: start: 201602

REACTIONS (2)
  - Blood glucose increased [Unknown]
  - Drug administration error [Unknown]
